FAERS Safety Report 5311011-6 (Version None)
Quarter: 2007Q2

REPORT INFORMATION
  Report Type: 
  Country: None (occurrence: None)
  Receive Date: 20070430
  Receipt Date: 20070417
  Transmission Date: 20071010
  Serious: Yes (Hospitalization)
  Sender: FDA-Public Use
  Company Number: DE-JNJFOC-20070403383

PATIENT
  Age: 78 Year
  Sex: Male

DRUGS (3)
  1. TAVANIC [Suspect]
     Indication: BRONCHITIS
     Route: 048
  2. ASTHMA MEDICATION [Concomitant]
     Indication: ASTHMA
     Route: 065
  3. HYPERTENSION MEDICATION [Concomitant]
     Indication: HYPERTENSION
     Route: 065

REACTIONS (2)
  - BLOOD PRESSURE INCREASED [None]
  - TACHYCARDIA [None]
